FAERS Safety Report 16705438 (Version 2)
Quarter: 2019Q3

REPORT INFORMATION
  Report Type: Report from Study
  Country: AU (occurrence: AU)
  Receive Date: 20190815
  Receipt Date: 20190906
  Transmission Date: 20191004
  Serious: Yes (Other)
  Sender: FDA-Public Use
  Company Number: AU-GLAXOSMITHKLINE-AU2019APC146171

PATIENT

DRUGS (6)
  1. PREDNISOLONE. [Concomitant]
     Active Substance: PREDNISOLONE
     Dosage: 50 MG, UNK
  2. VENTOLIN [Concomitant]
     Active Substance: ALBUTEROL SULFATE
     Indication: PRODUCT USED FOR UNKNOWN INDICATION
     Dosage: UNK
  3. PREDNISOLONE. [Concomitant]
     Active Substance: PREDNISOLONE
     Indication: PRODUCT USED FOR UNKNOWN INDICATION
     Dosage: 25 MG, UNK
  4. MEPOLIZUMAB [Suspect]
     Active Substance: MEPOLIZUMAB
     Indication: ASTHMA
     Dosage: 100 MG, Z MOTHLY
     Route: 058
     Dates: start: 20171206
  5. SERETIDE [Concomitant]
     Active Substance: FLUTICASONE PROPIONATE\SALMETEROL XINAFOATE
     Indication: PRODUCT USED FOR UNKNOWN INDICATION
     Dosage: UNK
  6. ROXITHROMYCIN [Concomitant]
     Active Substance: ROXITHROMYCIN
     Indication: PRODUCT USED FOR UNKNOWN INDICATION
     Dosage: 1 DF, QD, 300MG, TABLET

REACTIONS (5)
  - Upper respiratory tract infection [Recovered/Resolved]
  - Headache [Recovered/Resolved]
  - Productive cough [Recovering/Resolving]
  - Lung infection [Recovering/Resolving]
  - Aspergillus infection [Recovering/Resolving]

NARRATIVE: CASE EVENT DATE: 20190806
